FAERS Safety Report 5644101-9 (Version None)
Quarter: 2008Q1

REPORT INFORMATION
  Report Type: 
  Country: None (occurrence: None)
  Receive Date: 20080226
  Receipt Date: 20080212
  Transmission Date: 20080703
  Serious: Yes (Other)
  Sender: FDA-Public Use
  Company Number: CHNY2008BR00877

PATIENT
  Age: 28 Year
  Sex: Female

DRUGS (4)
  1. OTRIVINA (NCH)(XYLOMETAZOLINE HYDROCHLORIDE) NASAL GEL [Suspect]
     Indication: RHINITIS ALLERGIC
  2. OTRIVINA (NCH)(XYLOMETAZOLINE HYDROCHLORIDE) UNKNOWN [Suspect]
     Indication: RHINITIS ALLERGIC
     Dosage: 4 OR 5 TIMES A DAY, NASAL
     Route: 045
  3. POLARAMINE [Concomitant]
  4. DIANE (CYPROTERONE ACETATE, ETHINYLESTRADIOL) [Concomitant]

REACTIONS (6)
  - CONDITION AGGRAVATED [None]
  - DRUG INEFFECTIVE [None]
  - INTENTIONAL DRUG MISUSE [None]
  - NASAL CONGESTION [None]
  - THROAT IRRITATION [None]
  - WRONG TECHNIQUE IN DRUG USAGE PROCESS [None]
